FAERS Safety Report 17055268 (Version 1)
Quarter: 2019Q4

REPORT INFORMATION
  Report Type: Report from Study
  Country: FR (occurrence: FR)
  Receive Date: 20191120
  Receipt Date: 20191120
  Transmission Date: 20200122
  Serious: Yes (Death, Hospitalization, Other)
  Sender: FDA-Public Use
  Company Number: FR-JAZZ-2019-FR-006035

PATIENT

DRUGS (1)
  1. DEFITELIO [Suspect]
     Active Substance: DEFIBROTIDE SODIUM
     Indication: VENOOCCLUSIVE DISEASE
     Dosage: 24.6 MG/KG/DAY
     Route: 042
     Dates: start: 20181004, end: 20181017

REACTIONS (11)
  - Condition aggravated [Fatal]
  - Infection [Unknown]
  - Bacteraemia [Fatal]
  - Encephalopathy [Fatal]
  - Angioimmunoblastic T-cell lymphoma [Fatal]
  - Incorrect product administration duration [Unknown]
  - Graft versus host disease in liver [Fatal]
  - Duodenal ulcer haemorrhage [Fatal]
  - Venoocclusive disease [Fatal]
  - Underdose [Unknown]
  - BK virus infection [Unknown]

NARRATIVE: CASE EVENT DATE: 20181004
